FAERS Safety Report 19587519 (Version 3)
Quarter: 2021Q3

REPORT INFORMATION
  Report Type: Report from Study
  Country: CA (occurrence: CA)
  Receive Date: 20210721
  Receipt Date: 20210730
  Transmission Date: 20211014
  Serious: Yes (Other)
  Sender: FDA-Public Use
  Company Number: CA-PFIZER INC-10974

PATIENT

DRUGS (9)
  1. METHOTREXATE SODIUM. [Suspect]
     Active Substance: METHOTREXATE SODIUM
     Indication: T-CELL TYPE ACUTE LEUKAEMIA
     Dosage: UNK UNK, CYCLIC
     Route: 037
  2. DAUNORUBICIN HYDROCHLORIDE. [Concomitant]
     Active Substance: DAUNORUBICIN HYDROCHLORIDE
     Dosage: 25 MG/M2, FREQ: QD
     Route: 042
  3. CYTOSINE ARABINOSIDE [Concomitant]
     Active Substance: CYTARABINE
     Route: 037
  4. VINCRISTINE SULFATE. [Concomitant]
     Active Substance: VINCRISTINE SULFATE
     Dosage: 1.5 MG/M2, FREQ: QD
     Route: 042
  5. PREDNISONE. [Concomitant]
     Active Substance: PREDNISONE
     Dosage: 60 MG/M2, UNK
     Route: 048
  6. L?ASPARAGINASE [Concomitant]
     Active Substance: ASPARAGINASE
     Dosage: 6000 IU/M2, UNK
     Route: 030
  7. CYTARABINE. [Concomitant]
     Active Substance: CYTARABINE
     Dosage: UNK
     Route: 037
  8. MERCAPTOPURINE. [Concomitant]
     Active Substance: MERCAPTOPURINE
     Route: 048
  9. LEUCOVORIN CALCIUM. [Concomitant]
     Active Substance: LEUCOVORIN CALCIUM

REACTIONS (2)
  - Lymphocytic leukaemia [Recovered/Resolved]
  - White blood cell disorder [Recovered/Resolved]
